FAERS Safety Report 4522282-8 (Version None)
Quarter: 2004Q4

REPORT INFORMATION
  Report Type: 
  Country: None (occurrence: None)
  Receive Date: 20041207
  Receipt Date: 20041123
  Transmission Date: 20050328
  Serious: Yes (Hospitalization)
  Sender: FDA-Public Use
  Company Number: US_0411108641

PATIENT
  Age: 60 Year
  Sex: Female
  Weight: 170 kg

DRUGS (8)
  1. CYMBALTA [Suspect]
     Indication: DIABETIC NEUROPATHY
     Dosage: 40 MG DAY
     Dates: start: 20040915, end: 20040920
  2. ACTOS [Concomitant]
  3. COZAAR [Concomitant]
  4. ATENOLOL [Concomitant]
  5. BUMEX [Concomitant]
  6. ZYRTEC [Concomitant]
  7. AMBIEN [Concomitant]
  8. FLONASE [Concomitant]

REACTIONS (2)
  - ASTHENIA [None]
  - SYNCOPE [None]
